FAERS Safety Report 9369285 (Version 1)
Quarter: 2013Q2

REPORT INFORMATION
  Report Type: Spontaneous
  Country: US (occurrence: US)
  Receive Date: 20130626
  Receipt Date: 20130626
  Transmission Date: 20140414
  Serious: No
  Sender: FDA-Public Use
  Company Number: US-BAYER-2013-066914

PATIENT
  Sex: Female

DRUGS (1)
  1. STIVARGA [Suspect]
     Indication: COLORECTAL CANCER METASTATIC
     Dosage: RECOMMENDED 1- 40 MG TABLET IN THE AM + 2-40MG TABLETS IN THE PM ONE WEEK ON, 1 WEEK OFF
     Route: 048
     Dates: start: 201303, end: 20130508

REACTIONS (2)
  - Periorbital oedema [None]
  - Inappropriate schedule of drug administration [None]
